FAERS Safety Report 5179431-0 (Version None)
Quarter: 2006Q4

REPORT INFORMATION
  Report Type: 
  Country: None (occurrence: None)
  Receive Date: 20061211
  Receipt Date: 20061124
  Transmission Date: 20070319
  Serious: Yes (Other)
  Sender: FDA-Public Use
  Company Number: GB-DEXPHARM-2006069

PATIENT
  Age: 64 Year
  Sex: Male

DRUGS (3)
  1. CHLORHEXIDINE GLUCONATE [Suspect]
     Indication: PERIODONTITIS
     Dosage: 12 CHIPS (30 MG MILLIGRAM (S), DENTAL
     Route: 004
     Dates: start: 20061123, end: 20061123
  2. BENDROFLUAZIDE [Concomitant]
  3. ATENOLOL [Concomitant]

REACTIONS (4)
  - ANAPHYLACTOID REACTION [None]
  - DIZZINESS [None]
  - MALAISE [None]
  - VISION BLURRED [None]
